FAERS Safety Report 12883688 (Version 1)
Quarter: 2016Q4

REPORT INFORMATION
  Report Type: Spontaneous
  Country: US (occurrence: US)
  Receive Date: 20161025
  Receipt Date: 20161025
  Transmission Date: 20170207
  Serious: No
  Sender: FDA-Public Use
  Company Number: US-TAKEDA-2016TUS019010

PATIENT
  Age: 42 Year
  Sex: Female
  Weight: 99.77 kg

DRUGS (1)
  1. ENTYVIO [Suspect]
     Active Substance: VEDOLIZUMAB
     Indication: CROHN^S DISEASE
     Dosage: 300 MG, UNK
     Route: 042
     Dates: start: 201503, end: 20161003

REACTIONS (2)
  - Drug ineffective [Unknown]
  - Crohn^s disease [Not Recovered/Not Resolved]
